FAERS Safety Report 11471857 (Version 1)
Quarter: 2015Q3

REPORT INFORMATION
  Report Type: Spontaneous
  Country: US (occurrence: US)
  Receive Date: 20150908
  Receipt Date: 20150908
  Transmission Date: 20151125
  Serious: Yes (Hospitalization, Other)
  Sender: FDA-Public Use
  Company Number: US-009507513-1105USA01175

PATIENT
  Sex: Female
  Weight: 57.15 kg

DRUGS (9)
  1. FOSAMAX [Suspect]
     Active Substance: ALENDRONATE SODIUM
     Indication: OSTEOPOROSIS
     Dosage: 70 MG, QW
     Route: 048
     Dates: start: 200103
  2. CALCIUM (UNSPECIFIED) (+) VITAMIN D (UNSPECIFIED) [Concomitant]
     Active Substance: CALCIUM CARBONATE\VITAMIN D
     Indication: ROUTINE HEALTH MAINTENANCE
     Dosage: 1 DF, QD
     Route: 048
     Dates: start: 2001
  3. ASCORBIC ACID. [Concomitant]
     Active Substance: ASCORBIC ACID
     Indication: PRODUCT USED FOR UNKNOWN INDICATION
     Dosage: 1 DF, QD
     Route: 048
     Dates: start: 2001
  4. FOSAMAX [Suspect]
     Active Substance: ALENDRONATE SODIUM
     Indication: OSTEOPOROSIS
     Dosage: 70 MG, UNKNOWN
     Route: 048
     Dates: start: 20080225, end: 20090304
  5. SYNTHROID [Concomitant]
     Active Substance: LEVOTHYROXINE SODIUM
     Indication: HYPOTHYROIDISM
     Dosage: UNK, UNKNOWN
     Route: 048
  6. NEXIUM [Concomitant]
     Active Substance: ESOMEPRAZOLE MAGNESIUM
     Indication: GASTROOESOPHAGEAL REFLUX DISEASE
     Dosage: UNK UNK, PRN
     Route: 048
  7. ACTONEL [Concomitant]
     Active Substance: RISEDRONATE SODIUM
     Indication: OSTEOPOROSIS
     Dosage: 5 MG, QD
     Route: 065
     Dates: start: 20000912
  8. FOSAMAX [Suspect]
     Active Substance: ALENDRONATE SODIUM
     Indication: OSTEOPENIA
  9. ACTONEL [Concomitant]
     Active Substance: RISEDRONATE SODIUM
     Dosage: 150 MG, UNKNOWN
     Route: 048
     Dates: start: 200904, end: 200910

REACTIONS (32)
  - Lumbar spinal stenosis [Unknown]
  - Fall [Unknown]
  - Peripheral artery stenosis [Unknown]
  - Poor quality sleep [Unknown]
  - Diverticulum intestinal [Unknown]
  - Oesophageal hypomotility [Unknown]
  - Hip fracture [Unknown]
  - Femoral artery occlusion [Unknown]
  - Arthralgia [Not Recovered/Not Resolved]
  - Constipation [Unknown]
  - Meniscus injury [Unknown]
  - Joint swelling [Unknown]
  - Calcium deficiency [Unknown]
  - Back pain [Not Recovered/Not Resolved]
  - Peripheral arterial occlusive disease [Unknown]
  - Hypertension [Unknown]
  - Rhinitis allergic [Unknown]
  - Lumbar radiculopathy [Unknown]
  - Hyperlipidaemia [Unknown]
  - Dysphagia [Unknown]
  - Oesophageal disorder [Unknown]
  - Dyspnoea [Unknown]
  - Musculoskeletal pain [Unknown]
  - Arthropathy [Unknown]
  - Gastric pH decreased [Unknown]
  - Peripheral vascular disorder [Unknown]
  - Osteoarthritis [Unknown]
  - Appendicectomy [Unknown]
  - Rotator cuff syndrome [Unknown]
  - Cataract [Unknown]
  - Muscle strain [Recovered/Resolved]
  - Dyspepsia [Unknown]

NARRATIVE: CASE EVENT DATE: 2001
